FAERS Safety Report 7130756-9 (Version None)
Quarter: 2010Q4

REPORT INFORMATION
  Report Type: 
  Country: None (occurrence: None)
  Receive Date: 20101201
  Receipt Date: 20101118
  Transmission Date: 20110411
  Serious: Yes (Other)
  Sender: FDA-Public Use
  Company Number: US-ROCHE-722558

PATIENT
  Sex: Female
  Weight: 51.7 kg

DRUGS (3)
  1. ACCUTANE [Suspect]
     Indication: ACNE
     Route: 065
     Dates: start: 19830622, end: 19831019
  2. ACCUTANE [Suspect]
     Route: 065
     Dates: start: 19870831, end: 19871017
  3. ACCUTANE [Suspect]
     Route: 065
     Dates: start: 19930402, end: 19930707

REACTIONS (5)
  - COLITIS [None]
  - DEPRESSION [None]
  - INFLAMMATORY BOWEL DISEASE [None]
  - SKIN CHAPPED [None]
  - SUICIDAL IDEATION [None]
